FAERS Safety Report 5909735-2 (Version None)
Quarter: 2008Q4

REPORT INFORMATION
  Report Type: 
  Country: None (occurrence: None)
  Receive Date: 20081002
  Receipt Date: 20080918
  Transmission Date: 20090506
  Serious: Yes (Death, Hospitalization, Other)
  Sender: FDA-Public Use
  Company Number: 2008AL010245

PATIENT
  Age: 31 Year
  Sex: Female
  Weight: 55 kg

DRUGS (8)
  1. BUSPIRONE HCL [Suspect]
     Dosage: 5 MG; BID
  2. DIAZEPAM [Suspect]
     Dosage: 4 MG; TID
  3. PREGABALIN [Concomitant]
  4. VALPROIC ACID [Concomitant]
  5. AMITRIPTYLINE HCL [Concomitant]
  6. QUETIAPINE FUMARATE [Concomitant]
  7. INSULIN DETEMIR [Concomitant]
  8. HUMALOG [Concomitant]

REACTIONS (3)
  - CARDIAC DEATH [None]
  - DIABETES MELLITUS INADEQUATE CONTROL [None]
  - PANIC ATTACK [None]
